FAERS Safety Report 9107435 (Version 1)
Quarter: 2013Q1

REPORT INFORMATION
  Report Type: Other
  Country: GB (occurrence: GB)
  Receive Date: 20130221
  Receipt Date: 20130221
  Transmission Date: 20140127
  Serious: Yes (Death, Other)
  Sender: FDA-Public Use
  Company Number: GB-WATSON-2013-02563

PATIENT
  Age: 9 Month
  Sex: Female
  Weight: 9 kg

DRUGS (7)
  1. LEVETIRACETAM (UNKNOWN) [Suspect]
     Indication: EPILEPSY
     Dosage: 120 MG, BID
     Route: 048
     Dates: start: 20120709, end: 20121128
  2. PHENYTOIN [Suspect]
     Indication: STATUS EPILEPTICUS
     Dosage: 180MG OVER 20 MINUTES
     Route: 042
     Dates: start: 20121128, end: 20121128
  3. MIDAZOLAM [Suspect]
     Indication: CONVULSION
     Dosage: 2.5MG AT 5 MINUTES AND 15 MINUTES
     Route: 002
     Dates: start: 20121128, end: 20121128
  4. EPILIM [Suspect]
     Indication: CONVULSION
     Dosage: 140 MG, BID
     Route: 048
     Dates: start: 20120718, end: 20121128
  5. KEPPRA [Concomitant]
     Indication: PRODUCT USED FOR UNKNOWN INDICATION
     Dosage: UNKNOWN
     Route: 065
  6. PARACETAMOL [Concomitant]
     Indication: PRODUCT USED FOR UNKNOWN INDICATION
     Dosage: UNKNOWN
     Route: 065
  7. DIAZEPAM [Concomitant]
     Indication: PRODUCT USED FOR UNKNOWN INDICATION
     Dosage: UNKNOWN
     Route: 065

REACTIONS (2)
  - Cardiac arrest [Fatal]
  - Respiratory acidosis [Not Recovered/Not Resolved]
